FAERS Safety Report 6946063-0 (Version None)
Quarter: 2010Q3

REPORT INFORMATION
  Report Type: 
  Country: None (occurrence: None)
  Receive Date: 20100827
  Receipt Date: 20100312
  Transmission Date: 20110219
  Serious: No
  Sender: FDA-Public Use
  Company Number: A0845225A

PATIENT
  Age: 61 Year
  Sex: Male

DRUGS (1)
  1. ZOVIRAX [Suspect]
     Dosage: 5G UNKNOWN
     Route: 065
     Dates: end: 20100216

REACTIONS (2)
  - DRUG INEFFECTIVE [None]
  - PRODUCT QUALITY ISSUE [None]
